FAERS Safety Report 23808892 (Version 3)
Quarter: 2024Q2

REPORT INFORMATION
  Report Type: Spontaneous
  Country: BR (occurrence: BR)
  Receive Date: 20240502
  Receipt Date: 20240620
  Transmission Date: 20240715
  Serious: Yes (Hospitalization)
  Sender: FDA-Public Use
  Company Number: BR-BoehringerIngelheim-2024-BI-024016

PATIENT
  Age: 51 Year
  Sex: Female

DRUGS (11)
  1. CARDIZEM [Suspect]
     Active Substance: DILTIAZEM HYDROCHLORIDE
     Indication: Arrhythmia
     Route: 048
  2. CARDIZEM [Suspect]
     Active Substance: DILTIAZEM HYDROCHLORIDE
     Route: 048
  3. CARDIZEM [Suspect]
     Active Substance: DILTIAZEM HYDROCHLORIDE
     Dosage: PATIENT INFORMED THAT SHE OPENS THE CARDIZEM SR CAPSULE AND DILUTES THE MEDICATION IN WATER UNTIL IT
     Dates: start: 20240416
  4. PRADAXA [Suspect]
     Active Substance: DABIGATRAN ETEXILATE MESYLATE
     Indication: Anticoagulant therapy
     Route: 048
  5. PRADAXA [Suspect]
     Active Substance: DABIGATRAN ETEXILATE MESYLATE
     Dosage: PATIENT INFORMED THAT SHE OPENS THE PRADAXA CAPSULE AND DILUTES THE MEDICATION IN WATER UNTIL IT BEC
     Dates: start: 20240417
  6. PRADAXA [Suspect]
     Active Substance: DABIGATRAN ETEXILATE MESYLATE
     Dosage: SHE INGESTED A MELTED CAPSULE (WHOLE/WITHOUT DISSOLVING IN WATER).
     Dates: start: 202404
  7. XARELTO [Concomitant]
     Active Substance: RIVAROXABAN
     Indication: Product used for unknown indication
  8. WARFARIN SODIUM [Concomitant]
     Active Substance: WARFARIN SODIUM
     Indication: Product used for unknown indication
     Dates: end: 202310
  9. EZETIMIBE [Concomitant]
     Active Substance: EZETIMIBE
     Indication: Drug therapy
     Route: 048
  10. PURAN [Concomitant]
     Active Substance: LEVOTHYROXINE SODIUM
     Indication: Thyroid disorder
     Dates: start: 2023
  11. PURAN [Concomitant]
     Active Substance: LEVOTHYROXINE SODIUM
     Route: 048

REACTIONS (19)
  - Pneumonia [Recovered/Resolved]
  - Myocardial infarction [Recovered/Resolved]
  - Thrombosis [Recovered/Resolved]
  - Heart valve operation [Unknown]
  - Intestinal polyp [Not Recovered/Not Resolved]
  - Arrhythmia [Recovered/Resolved]
  - Wrong technique in product usage process [Recovered/Resolved]
  - Product preparation issue [Not Recovered/Not Resolved]
  - Product preparation issue [Recovered/Resolved]
  - Product residue present [Unknown]
  - Product residue present [Unknown]
  - Product physical issue [Unknown]
  - Heart rate increased [Unknown]
  - Asthenia [Unknown]
  - Memory impairment [Unknown]
  - Heart rate increased [Unknown]
  - Haematoma [Unknown]
  - Drug ineffective [Unknown]
  - Haemorrhage [Unknown]

NARRATIVE: CASE EVENT DATE: 20150101
